FAERS Safety Report 4704511-0 (Version None)
Quarter: 2005Q2

REPORT INFORMATION
  Report Type: 
  Country: None (occurrence: None)
  Receive Date: 20050629
  Receipt Date: 20050617
  Transmission Date: 20051028
  Serious: Yes (Life-Threatening)
  Sender: FDA-Public Use
  Company Number: 2005090437

PATIENT
  Age: 33 Year
  Sex: Male
  Weight: 75 kg

DRUGS (2)
  1. ZELDOX (IM) (ZIPRASIDONE) [Suspect]
     Indication: SCHIZOPHRENIA
     Dosage: SEE IMAGE
     Route: 048
     Dates: start: 20050430, end: 20050430
  2. ZELDOX (IM) (ZIPRASIDONE) [Suspect]
     Indication: SCHIZOPHRENIA
     Dosage: SEE IMAGE
     Route: 048
     Dates: start: 20050502

REACTIONS (5)
  - DYSPHAGIA [None]
  - DYSPNOEA [None]
  - HYPOTENSION [None]
  - MUSCLE SPASMS [None]
  - TONGUE DISORDER [None]
